FAERS Safety Report 5025184-6 (Version None)
Quarter: 2006Q2

REPORT INFORMATION
  Report Type: 
  Country: None (occurrence: None)
  Receive Date: 20060613
  Receipt Date: 20060204
  Transmission Date: 20061013
  Serious: Yes (Hospitalization)
  Sender: FDA-Public Use
  Company Number: US-GLAXOSMITHKLINE-B0409133A

PATIENT
  Age: 41 Year
  Sex: Male
  Weight: 46.4 kg

DRUGS (6)
  1. LAMICTAL [Suspect]
     Indication: EPILEPSY
     Route: 048
     Dates: start: 20060107, end: 20060203
  2. LAMICTAL [Concomitant]
     Dosage: 150MG TWICE PER DAY
     Dates: start: 20060209
  3. DEPAKOTE [Concomitant]
     Indication: CONVULSION
     Dosage: 1525MG PER DAY
  4. RANITIDINE [Concomitant]
     Indication: REGURGITATION OF FOOD
     Dosage: 300MG PER DAY
  5. LEVAQUIN [Concomitant]
     Indication: INFECTION PROPHYLAXIS
     Dosage: 500MG PER DAY
     Route: 042
     Dates: start: 20060204, end: 20060209
  6. PROTONIX [Concomitant]
     Indication: BRADYCARDIA
     Dosage: 1MG AS REQUIRED
     Route: 042
     Dates: start: 20060209

REACTIONS (8)
  - ABDOMINAL DISTENSION [None]
  - CONVULSION [None]
  - ELECTROCARDIOGRAM ABNORMAL [None]
  - HAEMOPTYSIS [None]
  - HIATUS HERNIA [None]
  - OSTEOPENIA [None]
  - PULMONARY GRANULOMA [None]
  - TONGUE BITING [None]
